FAERS Safety Report 6204444-7 (Version None)
Quarter: 2009Q2

REPORT INFORMATION
  Report Type: 
  Country: None (occurrence: None)
  Receive Date: 20090527
  Receipt Date: 20090427
  Transmission Date: 20091009
  Serious: No
  Sender: FDA-Public Use
  Company Number: US-BAYER-200911338BCC

PATIENT
  Age: 52 Year
  Sex: Male
  Weight: 66 kg

DRUGS (3)
  1. ALEVE [Suspect]
     Indication: TENDONITIS
     Dosage: UNIT DOSE: 220 MG
     Route: 048
     Dates: start: 20090421, end: 20090423
  2. UNKNOWN ANATRIPALINE [Concomitant]
     Indication: DRUG USE FOR UNKNOWN INDICATION
     Route: 065
  3. RETADINE [Concomitant]
     Indication: DRUG USE FOR UNKNOWN INDICATION
     Route: 065

REACTIONS (1)
  - OROPHARYNGEAL BLISTERING [None]
